FAERS Safety Report 23687637 (Version 2)
Quarter: 2024Q2

REPORT INFORMATION
  Report Type: Spontaneous
  Country: GB (occurrence: GB)
  Receive Date: 20240329
  Receipt Date: 20240403
  Transmission Date: 20240716
  Serious: Yes (Other)
  Sender: FDA-Public Use
  Company Number: GB-JNJFOC-20240372909

PATIENT
  Age: 16 Year
  Sex: Female
  Weight: 76 kg

DRUGS (2)
  1. IMODIUM [Suspect]
     Active Substance: LOPERAMIDE HYDROCHLORIDE
     Indication: Irritable bowel syndrome
     Route: 065
     Dates: end: 20240322
  2. CILIQUE [Concomitant]
     Indication: Polycystic ovarian syndrome
     Route: 065

REACTIONS (2)
  - Product administered to patient of inappropriate age [Unknown]
  - Chest pain [Recovering/Resolving]
